FAERS Safety Report 7870402-X (Version None)
Quarter: 2011Q4

REPORT INFORMATION
  Report Type: 
  Country: None (occurrence: None)
  Receive Date: 20111029
  Receipt Date: 20110309
  Transmission Date: 20120403
  Serious: No
  Sender: FDA-Public Use
  Company Number: US-AMGEN-USASP2011013308

PATIENT
  Age: 58 Year
  Sex: Female

DRUGS (2)
  1. TREXALL [Concomitant]
  2. ENBREL [Suspect]
     Indication: RHEUMATOID ARTHRITIS
     Dosage: 50 MG, QWK
     Dates: start: 20110203

REACTIONS (3)
  - VOMITING [None]
  - MIGRAINE [None]
  - DIARRHOEA [None]
